FAERS Safety Report 10682221 (Version 2)
Quarter: 2015Q1

REPORT INFORMATION
  Report Type: Spontaneous
  Country: US (occurrence: US)
  Receive Date: 20141230
  Receipt Date: 20150116
  Transmission Date: 20150720
  Serious: No
  Sender: FDA-Public Use
  Company Number: US-PFIZER INC-2014358695

PATIENT
  Age: 62 Year
  Sex: Female

DRUGS (1)
  1. SUTENT [Suspect]
     Active Substance: SUNITINIB MALATE
     Indication: ADENOCARCINOMA
     Dosage: 50 MG, 1X/DAY
     Dates: end: 20141201

REACTIONS (7)
  - Asthenia [Unknown]
  - Fatigue [Unknown]
  - Temperature intolerance [Unknown]
  - Decreased appetite [Unknown]
  - Diarrhoea [Unknown]
  - Depressed mood [Unknown]
  - Stomatitis [Unknown]

NARRATIVE: CASE EVENT DATE: 20141117
